FAERS Safety Report 17928094 (Version 1)
Quarter: 2020Q2

REPORT INFORMATION
  Report Type: Spontaneous
  Country: US (occurrence: US)
  Receive Date: 20200623
  Receipt Date: 20200623
  Transmission Date: 20200714
  Serious: No
  Sender: FDA-Public Use
  Company Number: US-009507513-2006USA006601

PATIENT
  Age: 61 Year
  Sex: Female

DRUGS (2)
  1. AMIKACIN. [Concomitant]
     Active Substance: AMIKACIN
     Indication: CONJUNCTIVITIS BACTERIAL
     Route: 061
  2. PRIMAXIN IV [Suspect]
     Active Substance: CILASTATIN SODIUM\IMIPENEM
     Indication: CONJUNCTIVITIS BACTERIAL
     Dosage: 500 MILLIGRAM, Q6H
     Route: 042

REACTIONS (1)
  - Product use in unapproved indication [Unknown]
